FAERS Safety Report 19034694 (Version 1)
Quarter: 2021Q1

REPORT INFORMATION
  Report Type: Other
  Country: DE (occurrence: DE)
  Receive Date: 20210320
  Receipt Date: 20210320
  Transmission Date: 20210420
  Serious: Yes (Other)
  Sender: FDA-Public Use
  Company Number: DE-INNOGENIX, LLC-2108240

PATIENT
  Sex: Female

DRUGS (5)
  1. PREDNISOLONE ACETATE. [Suspect]
     Active Substance: PREDNISOLONE ACETATE
     Route: 065
  2. BRIMONIDINE [Suspect]
     Active Substance: BRIMONIDINE TARTRATE
     Route: 065
  3. TAFLUPROST [Suspect]
     Active Substance: TAFLUPROST
     Route: 065
  4. PILOCARPINE HYDROCHLORIDE. [Suspect]
     Active Substance: PILOCARPINE HYDROCHLORIDE
     Indication: GLAUCOMA
     Route: 065
  5. DORZOLAMIDE AND TIMOLOL [Suspect]
     Active Substance: DORZOLAMIDE\TIMOLOL
     Route: 065

REACTIONS (1)
  - Uveitis [Unknown]
